FAERS Safety Report 9595280 (Version 1)
Quarter: 2013Q3

REPORT INFORMATION
  Report Type: Spontaneous
  Country: US (occurrence: None)
  Receive Date: 20130927
  Receipt Date: 20130927
  Transmission Date: 20140515
  Serious: Yes (Hospitalization)
  Sender: FDA-Public Use
  Company Number: CABO-13002848

PATIENT
  Age: 23 Year
  Sex: Female

DRUGS (3)
  1. COMETRIQ (CABOZANTINIB) CAPSULE [Suspect]
     Indication: THYROID CANCER
     Dosage: 140 MG, QD, ORAL
     Route: 048
     Dates: start: 20130606, end: 20130706
  2. SYNTHROID (LEVOTHYROXINE SODIUM) [Concomitant]
  3. FENTANYL (FENTANYL) [Concomitant]

REACTIONS (10)
  - Nausea [None]
  - Abdominal pain [None]
  - Vomiting [None]
  - Pyrexia [None]
  - Body temperature fluctuation [None]
  - Sinus congestion [None]
  - Paranasal sinus hypersecretion [None]
  - Hypophagia [None]
  - Hypertension [None]
  - Asthenia [None]
